FAERS Safety Report 8976364 (Version 3)
Quarter: 2013Q1

REPORT INFORMATION
  Report Type: Spontaneous
  Country: JP (occurrence: JP)
  Receive Date: 20121220
  Receipt Date: 20130304
  Transmission Date: 20140127
  Serious: Yes (Other)
  Sender: FDA-Public Use
  Company Number: JP-PFIZER INC-2012315277

PATIENT
  Age: 34 Year
  Sex: Female

DRUGS (2)
  1. XALATAN [Suspect]
     Indication: GLAUCOMA
     Dosage: 1 GTT, 1X/DAY
     Route: 047
     Dates: start: 20121128, end: 20121208
  2. SANCOBA [Concomitant]
     Indication: ASTHENOPIA
     Dosage: 1 GTT, 4X/DAY
     Route: 047
     Dates: start: 20111228

REACTIONS (1)
  - Blood pressure increased [Recovered/Resolved]
